FAERS Safety Report 16241717 (Version 1)
Quarter: 2019Q2

REPORT INFORMATION
  Report Type: Spontaneous
  Country: US (occurrence: US)
  Receive Date: 20190426
  Receipt Date: 20190426
  Transmission Date: 20190711
  Serious: No
  Sender: FDA-Public Use
  Company Number: US-ASTRAZENECA-2019SE62961

PATIENT
  Sex: Female

DRUGS (1)
  1. NEXIUM 24HR [Suspect]
     Active Substance: ESOMEPRAZOLE MAGNESIUM
     Dosage: 2 DF, 1X/DAY (TWO CAPSULES AT THE SAME TIME EVERY DAY)
     Route: 046

REACTIONS (3)
  - Dry mouth [Unknown]
  - Incorrect product administration duration [Unknown]
  - Product use issue [Unknown]
